FAERS Safety Report 7905120-2 (Version None)
Quarter: 2011Q4

REPORT INFORMATION
  Report Type: 
  Country: None (occurrence: None)
  Receive Date: 20111109
  Receipt Date: 20111102
  Transmission Date: 20120403
  Serious: Yes (Other)
  Sender: FDA-Public Use
  Company Number: PHHY2011DE90251

PATIENT
  Sex: Male
  Weight: 84 kg

DRUGS (6)
  1. AMLODIPINE [Concomitant]
     Dosage: UNK
     Route: 048
     Dates: start: 20110101
  2. EXFORGE HCT [Suspect]
     Dosage: 1 DF, QD (320 MG VALS/10 MG AMLO/25 MG HYDR)
     Route: 048
     Dates: start: 20110919, end: 20110927
  3. METFORMIN HCL [Concomitant]
     Dosage: 1000 MG METF AND 50 MG SITA
     Route: 048
     Dates: start: 20100101
  4. EXFORGE HCT [Suspect]
     Indication: HYPERTENSION
     Dosage: 1 DF, QD (320 MG VALS/10 MG AMLO/25 MG HYDR)
     Route: 048
     Dates: start: 20110118, end: 20110126
  5. OLMESARTAN MEDOXOMIL [Concomitant]
     Route: 048
  6. HYDROCHLOROTHIAZID [Concomitant]

REACTIONS (2)
  - HYPERTENSIVE CRISIS [None]
  - HYPERTENSION [None]
